FAERS Safety Report 9639877 (Version 1)
Quarter: 2013Q4

REPORT INFORMATION
  Report Type: Spontaneous
  Country: US (occurrence: None)
  Receive Date: 20131021
  Receipt Date: 20131021
  Transmission Date: 20140711
  Serious: Yes (Hospitalization, Disabling, Other)
  Sender: FDA-Public Use
  Company Number: None

PATIENT
  Age: 57 Year
  Sex: Male
  Weight: 90.72 kg

DRUGS (1)
  1. SENSIPAR [Suspect]
     Indication: PARATHYROID TUMOUR
     Dosage: 1 PILL ONCE DAILY TAKEN BY MOUTH
     Route: 048

REACTIONS (9)
  - Chest pain [None]
  - Impaired work ability [None]
  - Retinal detachment [None]
  - Tinnitus [None]
  - Paraesthesia [None]
  - Insomnia [None]
  - Nervousness [None]
  - Bone pain [None]
  - Tinnitus [None]
